FAERS Safety Report 15882274 (Version 1)
Quarter: 2019Q1

REPORT INFORMATION
  Report Type: Spontaneous
  Country: US (occurrence: US)
  Receive Date: 20190128
  Receipt Date: 20190128
  Transmission Date: 20190417
  Serious: Yes (Other)
  Sender: FDA-Public Use
  Company Number: US-ELI_LILLY_AND_COMPANY-US201901012848

PATIENT
  Age: 55 Year
  Sex: Male

DRUGS (4)
  1. PACLITAXEL. [Concomitant]
     Active Substance: PACLITAXEL
     Indication: GASTRIC CANCER
     Dosage: 156 MG, UNKNOWN
     Route: 042
     Dates: start: 20190117
  2. PEPCID [FAMOTIDINE] [Concomitant]
     Indication: PROPHYLAXIS
     Dosage: 20 MG, UNKNOWN
     Route: 042
     Dates: start: 20190117, end: 20190117
  3. CYRAMZA [Suspect]
     Active Substance: RAMUCIRUMAB
     Indication: GASTRIC CANCER
     Dosage: 600 MG, UNKNOWN
     Route: 041
     Dates: start: 20190103, end: 20190103
  4. CYRAMZA [Suspect]
     Active Substance: RAMUCIRUMAB
     Dosage: 600 MG, UNKNOWN
     Route: 041
     Dates: start: 20190117

REACTIONS (5)
  - Pruritus [Recovered/Resolved]
  - Rash [Recovered/Resolved]
  - Dyspnoea [Recovered/Resolved]
  - Pruritus generalised [Recovered/Resolved]
  - Lip pruritus [Recovered/Resolved]

NARRATIVE: CASE EVENT DATE: 20190103
